FAERS Safety Report 18126153 (Version 2)
Quarter: 2020Q4

REPORT INFORMATION
  Report Type: Report from Study
  Country: None (occurrence: US)
  Receive Date: 20200808
  Receipt Date: 20201225
  Transmission Date: 20210113
  Serious: Yes (Hospitalization, Other)
  Sender: FDA-Public Use
  Company Number: US-ABBVIE-20K-163-3517253-00

PATIENT
  Age: 62 Year
  Sex: Male

DRUGS (1)
  1. CREON [Suspect]
     Active Substance: PANCRELIPASE AMYLASE\PANCRELIPASE LIPASE\PANCRELIPASE PROTEASE
     Indication: PANCREATIC FAILURE
     Route: 048

REACTIONS (9)
  - Pancreaticoduodenectomy [Recovering/Resolving]
  - Renal cancer [Unknown]
  - Abdominal pain [Not Recovered/Not Resolved]
  - Hepatic cancer [Unknown]
  - Pancreatic carcinoma [Unknown]
  - Lung neoplasm malignant [Unknown]
  - Prostate cancer [Unknown]
  - Vomiting [Recovering/Resolving]
  - Nausea [Recovering/Resolving]

NARRATIVE: CASE EVENT DATE: 2020
